FAERS Safety Report 8817319 (Version 2)
Quarter: 2012Q4

REPORT INFORMATION
  Report Type: Report from Study
  Country: CA (occurrence: CA)
  Receive Date: 20121004
  Receipt Date: 20121019
  Transmission Date: 20130627
  Serious: Yes (Hospitalization)
  Sender: FDA-Public Use
  Company Number: CA-ABBOTT-12P-028-0986781-00

PATIENT
  Age: 61 Year
  Sex: Male

DRUGS (6)
  1. HUMIRA [Suspect]
     Indication: CROHN^S DISEASE
     Dosage: Baseline
     Route: 058
     Dates: start: 20090310, end: 20090310
  2. HUMIRA [Suspect]
     Dosage: Week 2
     Route: 058
  3. HUMIRA [Suspect]
     Route: 058
     Dates: end: 20090606
  4. POTASSIUM CITRATE [Concomitant]
     Indication: CALCULUS URINARY
     Dates: start: 20090409, end: 20120828
  5. ALLOPURINOL [Concomitant]
     Indication: CALCULUS URINARY
     Dates: end: 20090408
  6. ALLOPURINOL [Concomitant]
     Dates: start: 20090409, end: 20120828

REACTIONS (2)
  - Enterocutaneous fistula [Unknown]
  - Abscess intestinal [Unknown]
